FAERS Safety Report 21685564 (Version 1)
Quarter: 2022Q4

REPORT INFORMATION
  Report Type: Spontaneous
  Country: GB (occurrence: GB)
  Receive Date: 20221206
  Receipt Date: 20221206
  Transmission Date: 20230113
  Serious: Yes (Hospitalization, Other)
  Sender: FDA-Public Use
  Company Number: None

PATIENT
  Age: 88 Year

DRUGS (13)
  1. OMEPRAZOLE [Suspect]
     Active Substance: OMEPRAZOLE
     Dosage: ONE TO BE TAKEN EACH DAY BEFORE EATING AND DRINKING, IF NEEDED
  2. AMOXICILLIN [Concomitant]
     Active Substance: AMOXICILLIN
     Dosage: 500MG CAPSULES, ONE TO BE TAKEN THREE TIMES A DAY
  3. Colecalciferol 400unit / Calcium carbonate [Concomitant]
     Dosage: 1.5G CHEWABLE TABLETS, TWO CHEWABLE TABLETS PER DAY, PREFERABLY ONE TABLET EACH MORNING AND EVENING
  4. DOCUSATE [Concomitant]
     Active Substance: DOCUSATE
     Indication: Constipation
     Dosage: 100MG CAPSULES, TAKE TWO TWICE DAILY IF NEEDED FOR CONSTIPATION
  5. MINERAL OIL\PETROLATUM\WAX, EMULSIFYING [Concomitant]
     Active Substance: MINERAL OIL\PETROLATUM\WAX, EMULSIFYING
     Dosage: APPLY 2-3 TIMES DAILY AS NEEDED
  6. LACTULOSE [Concomitant]
     Active Substance: LACTULOSE
     Indication: Constipation
     Dosage: 15ML TO BE TAKEN TWICE A DAY AS NEEDED FOR CONSTIPATION
  7. Lidocaine 5% / Hydrocortisone acetate 0.275% [Concomitant]
     Dosage: APPLY TWICE DAILY
  8. ACETAMINOPHEN [Concomitant]
     Active Substance: ACETAMINOPHEN
     Dosage: 500MG CAPSULES, TWO TO BE TAKEN EVERY 6 HOURS/FOUR TIMES A DAY IF NEEDED
  9. PREDNISOLONE [Concomitant]
     Active Substance: PREDNISOLONE
     Dosage: 5MG TABLETS, 8 TABLETS IN THE MORNING FOR 5 DAYS
  10. Sodium alginate 500mg / Potassium bicarbonate [Concomitant]
     Dosage: 100MG CHEWABLE TABLETS SUGAR FREE, ONE OR TWO TO BE CHEWED AFTER MEALS AND AT BEDTIME
  11. TRELEGY ELLIPTA [Concomitant]
     Active Substance: FLUTICASONE FUROATE\UMECLIDINIUM BROMIDE\VILANTEROL TRIFENATATE
     Dosage: TRELEGY ELLIPTA 92MICROGRAMS// 55MICROGRAMS/DOSE / 22MICROGRAMS/DOSE DRY POWDER INHALER. ONE DOSE...
     Route: 055
  12. WARFARIN [Concomitant]
     Active Substance: WARFARIN
     Dosage: 1MG TABLETS, TAKE AS PRESCRIBED IN ANTICOAGULANT TREATMENT BOOK
  13. VENTOLIN [Concomitant]
     Active Substance: ALBUTEROL SULFATE
     Dosage: VENTOLIN 100MICROGRAMS/DOSE EVOHALER (GLAXOSMITHKLINE UK LTD), INHALE 2 DOSES AS NEEDED ; AS NECE...
     Route: 055

REACTIONS (1)
  - Osteoporosis [Unknown]
